FAERS Safety Report 5785950-6 (Version None)
Quarter: 2008Q2

REPORT INFORMATION
  Report Type: 
  Country: None (occurrence: None)
  Receive Date: 20080624
  Receipt Date: 20070619
  Transmission Date: 20081010
  Serious: No
  Sender: FDA-Public Use
  Company Number: US-ASTRAZENECA-2007UW14598

PATIENT
  Age: 81 Year
  Sex: Female
  Weight: 93 kg

DRUGS (6)
  1. PULMICORT RESPULES [Suspect]
     Indication: DYSPNOEA
     Route: 055
  2. DUONEB [Suspect]
  3. SINGULAIR [Concomitant]
  4. ZOCOR [Concomitant]
  5. ASPIRIN [Concomitant]
  6. ALLOPURINOL [Concomitant]

REACTIONS (1)
  - INSOMNIA [None]
